FAERS Safety Report 24582612 (Version 3)
Quarter: 2024Q4

REPORT INFORMATION
  Report Type: Spontaneous
  Country: US (occurrence: US)
  Receive Date: 20241106
  Receipt Date: 20241221
  Transmission Date: 20250115
  Serious: No
  Sender: ROCHE
  Company Number: US-ROCHE-10000117380

PATIENT
  Age: 62 Year
  Sex: Female
  Weight: 62.59 kg

DRUGS (4)
  1. XOLAIR [Suspect]
     Active Substance: OMALIZUMAB
     Indication: Chronic spontaneous urticaria
     Dosage: 2 OF 150MG AUTO INJECTORS
     Route: 058
     Dates: start: 20240829
  2. SINGULAIR [Concomitant]
     Active Substance: MONTELUKAST SODIUM
     Indication: Asthma
     Route: 048
     Dates: start: 20240607
  3. HYDROXYZINE [Concomitant]
     Active Substance: HYDROXYZINE HYDROCHLORIDE
     Indication: Pruritus
  4. PREDNISONE [Concomitant]
     Active Substance: PREDNISONE
     Indication: Asthma
     Dates: start: 2021

REACTIONS (8)
  - Accidental exposure to product [Unknown]
  - Injury associated with device [Recovered/Resolved]
  - Skin laceration [Not Recovered/Not Resolved]
  - Haemorrhage [Recovered/Resolved]
  - Underdose [Unknown]
  - Basophil count decreased [Unknown]
  - Needle issue [Unknown]
  - Device malfunction [Unknown]

NARRATIVE: CASE EVENT DATE: 20241003
